FAERS Safety Report 5938234-7 (Version None)
Quarter: 2008Q4

REPORT INFORMATION
  Report Type: 
  Country: None (occurrence: None)
  Receive Date: 20081031
  Receipt Date: 20081022
  Transmission Date: 20090506
  Serious: Yes (Life-Threatening)
  Sender: FDA-Public Use
  Company Number: GB-PFIZER INC-2008089550

PATIENT
  Age: 61 Year
  Sex: Female

DRUGS (6)
  1. EPIRUBICIN HYDROCHLORIDE [Suspect]
     Indication: BREAST CANCER
     Route: 042
     Dates: start: 20060601, end: 20060901
  2. FLUOROURACIL [Suspect]
     Route: 042
  3. CYCLOPHOSPHAMIDE [Suspect]
     Route: 042
     Dates: start: 20060601, end: 20060901
  4. NEULASTA [Suspect]
     Indication: BREAST CANCER
     Route: 042
  5. DOCETAXEL [Suspect]
     Dates: end: 20061101
  6. LETROZOLE [Suspect]

REACTIONS (1)
  - PROGRESSIVE MULTIFOCAL LEUKOENCEPHALOPATHY [None]
